FAERS Safety Report 8906740 (Version 1)
Quarter: 2012Q4

REPORT INFORMATION
  Report Type: 
  Country: US (occurrence: US)
  Receive Date: 20121114
  Receipt Date: 20121114
  Transmission Date: 20130627
  Serious: No
  Sender: FDA-Public Use
  Company Number: US-FOUGERA-2012FO001006

PATIENT
  Age: 30 Month
  Sex: Male

DRUGS (2)
  1. GENTAMICIN SULFATE [Suspect]
     Indication: CHALAZION
     Route: 061
     Dates: start: 201110, end: 201110
  2. GENTAMICIN SULFATE [Suspect]
     Indication: CHALAZION
     Route: 061
     Dates: start: 20120209, end: 20120216

REACTIONS (2)
  - Photophobia [Not Recovered/Not Resolved]
  - Drug administration error [Recovered/Resolved]
